FAERS Safety Report 6338129-3 (Version None)
Quarter: 2009Q3

REPORT INFORMATION
  Report Type: 
  Country: None (occurrence: None)
  Receive Date: 20090902
  Receipt Date: 20090825
  Transmission Date: 20100115
  Serious: Yes (Death)
  Sender: FDA-Public Use
  Company Number: US-NAPPMUNDI-USA-2009-0038568

PATIENT
  Sex: Female

DRUGS (10)
  1. OXYCONTIN [Suspect]
     Indication: PAIN IN EXTREMITY
     Dosage: 80 MG, BID
     Dates: start: 20080501, end: 20090524
  2. ABILIFY [Concomitant]
     Indication: DRUG USE FOR UNKNOWN INDICATION
  3. LASIX [Concomitant]
  4. LEXAPRO [Concomitant]
     Indication: DRUG USE FOR UNKNOWN INDICATION
  5. QUARK [Concomitant]
     Indication: DRUG USE FOR UNKNOWN INDICATION
  6. SOMA [Concomitant]
     Indication: DRUG USE FOR UNKNOWN INDICATION
  7. NOVOLIN                            /00030501/ [Concomitant]
     Indication: DIABETES MELLITUS
  8. HUMULIN                            /00646001/ [Concomitant]
     Indication: DIABETES MELLITUS
  9. SYNTHROID [Concomitant]
     Indication: DRUG USE FOR UNKNOWN INDICATION
  10. ENALAPRIL MALEATE [Concomitant]
     Indication: DRUG USE FOR UNKNOWN INDICATION

REACTIONS (1)
  - DEATH [None]
